FAERS Safety Report 26091155 (Version 4)
Quarter: 2025Q4

REPORT INFORMATION
  Report Type: Spontaneous
  Country: US (occurrence: US)
  Receive Date: 20251126
  Receipt Date: 20251203
  Transmission Date: 20260119
  Serious: No
  Sender: JOHNSON AND JOHNSON
  Company Number: US-JNJFOC-20251165124

PATIENT
  Age: 36 Year
  Sex: Male

DRUGS (1)
  1. TREMFYA [Suspect]
     Active Substance: GUSELKUMAB
     Indication: Colitis ulcerative
     Dosage: FORM STRENGTH: 200.00 MG / 2.00 ML
     Route: 065
     Dates: start: 20251119

REACTIONS (4)
  - Wrong technique in product usage process [Unknown]
  - Product dose omission issue [Unknown]
  - Device leakage [Unknown]
  - Device malfunction [Unknown]

NARRATIVE: CASE EVENT DATE: 20251119
